FAERS Safety Report 5232783-5 (Version None)
Quarter: 2007Q1

REPORT INFORMATION
  Report Type: 
  Country: None (occurrence: None)
  Receive Date: 20070207
  Receipt Date: 20070201
  Transmission Date: 20070707
  Serious: Yes (Other)
  Sender: FDA-Public Use
  Company Number: US-BRISTOL-MYERS SQUIBB COMPANY-13535612

PATIENT
  Age: 75 Year
  Sex: Male

DRUGS (7)
  1. CETUXIMAB [Suspect]
     Indication: NON-SMALL CELL LUNG CANCER
     Route: 042
     Dates: start: 20060907, end: 20060907
  2. CARBOPLATIN [Suspect]
     Indication: NON-SMALL CELL LUNG CANCER
     Route: 042
     Dates: start: 20060824, end: 20060824
  3. CARBOPLATIN [Suspect]
     Route: 042
     Dates: start: 20060622, end: 20060824
  4. DOCETAXEL [Suspect]
     Indication: NON-SMALL CELL LUNG CANCER
     Route: 042
     Dates: start: 20060824, end: 20060824
  5. ALOXI [Concomitant]
     Dates: start: 20060622, end: 20060824
  6. DECADRON [Concomitant]
     Dates: start: 20060621, end: 20060825
  7. NEXIUM [Concomitant]
     Dates: start: 20060629

REACTIONS (2)
  - INFARCTION [None]
  - MYOCARDIAL ISCHAEMIA [None]
